FAERS Safety Report 9091063 (Version 1)
Quarter: 2013Q1

REPORT INFORMATION
  Report Type: Report from Study
  Country: US (occurrence: US)
  Receive Date: 20130201
  Receipt Date: 20130201
  Transmission Date: 20140127
  Serious: No
  Sender: FDA-Public Use
  Company Number: US-ABBOTT-13P-163-1030538-00

PATIENT
  Sex: Female

DRUGS (1)
  1. HUMIRA [Suspect]
     Indication: CROHN^S DISEASE
     Dosage: 40MG EVERY OTHER WEEK STARTING 2 WEEKS AFTER LAST DOSE
     Route: 058
     Dates: start: 201204

REACTIONS (3)
  - Bronchitis [Unknown]
  - Psoriasis [Unknown]
  - Nausea [Unknown]
